FAERS Safety Report 4561179-4 (Version None)
Quarter: 2005Q1

REPORT INFORMATION
  Report Type: 
  Country: None (occurrence: None)
  Receive Date: 20050126
  Receipt Date: 20050117
  Transmission Date: 20050727
  Serious: Yes (Disabling)
  Sender: FDA-Public Use
  Company Number: PHBS2005IT01174

PATIENT
  Age: 77 Year
  Sex: Male

DRUGS (11)
  1. DURAGESIC [Concomitant]
     Route: 062
  2. PANTECTA [Concomitant]
     Dosage: 40 MG/D
     Route: 065
  3. LEVOTHYROXINE SODIUM [Concomitant]
     Dosage: 75 MG/D
     Route: 065
  4. MODURETIC 5-50 [Concomitant]
     Route: 065
  5. ENOXAPARIN SODIUM [Concomitant]
     Dosage: 4000 UI/D
     Route: 065
  6. SOLDESAM [Concomitant]
     Route: 048
  7. ZYLORIC [Concomitant]
     Route: 048
  8. XANAX [Concomitant]
     Route: 065
  9. ZOMETA [Suspect]
     Indication: METASTASES TO BONE
     Dosage: 4 MG, QMO
     Route: 042
     Dates: start: 20040604, end: 20041004
  10. ZOMETA [Suspect]
     Dosage: 4 MG, QMO
     Route: 042
     Dates: start: 20040220
  11. CLASTEON [Suspect]
     Indication: BONE MARROW TUMOUR CELL INFILTRATION
     Dosage: 200 MG, QMO
     Route: 030
     Dates: start: 20040301, end: 20040531

REACTIONS (4)
  - MASTICATION DISORDER [None]
  - PAIN IN JAW [None]
  - TOOTH ABSCESS [None]
  - TOOTH EXTRACTION [None]
